FAERS Safety Report 4544251-4 (Version None)
Quarter: 2004Q4

REPORT INFORMATION
  Report Type: 
  Country: None (occurrence: None)
  Receive Date: 20041230
  Receipt Date: 20041221
  Transmission Date: 20050328
  Serious: Yes (Life-Threatening, Hospitalization)
  Sender: FDA-Public Use
  Company Number: HQWYE788207DEC04

PATIENT
  Age: 78 Year
  Sex: Female

DRUGS (3)
  1. PROPRANOLOL HYDROCHLORIDE [Suspect]
     Dosage: 160 MG 1X PER 1 DAY
     Route: 048
     Dates: end: 20040101
  2. TAREG (VALSARTAN) [Concomitant]
  3. HYPERIUM (RILMENIDINE) [Concomitant]

REACTIONS (15)
  - ACUTE RESPIRATORY DISTRESS SYNDROME [None]
  - ALVEOLITIS ALLERGIC [None]
  - BLOOD PRESSURE INADEQUATELY CONTROLLED [None]
  - CULTURE URINE POSITIVE [None]
  - DEEP VEIN THROMBOSIS [None]
  - HAEMATOMA [None]
  - HEPARIN-INDUCED THROMBOCYTOPENIA [None]
  - HYPOTHYROIDISM [None]
  - NOSOCOMIAL INFECTION [None]
  - PLEURISY [None]
  - PNEUMOTHORAX [None]
  - PULMONARY FIBROSIS [None]
  - SEPSIS [None]
  - STAPHYLOCOCCAL INFECTION [None]
  - STREPTOCOCCAL INFECTION [None]
